FAERS Safety Report 15680754 (Version 1)
Quarter: 2018Q4

REPORT INFORMATION
  Report Type: Spontaneous
  Country: US (occurrence: US)
  Receive Date: 20181120
  Receipt Date: 20181120
  Transmission Date: 20190205
  Serious: Yes (Other)
  Sender: FDA-Public Use
  Company Number: None

PATIENT
  Age: 67 Year
  Sex: Female
  Weight: 88.2 kg

DRUGS (16)
  1. VALSARTAN. [Suspect]
     Active Substance: VALSARTAN
  2. METOPROLOL. [Concomitant]
     Active Substance: METOPROLOL
  3. OMEPRAXOLE [Concomitant]
  4. VITAMIN D2 [Concomitant]
     Active Substance: ERGOCALCIFEROL
  5. MELATONIN [Concomitant]
     Active Substance: MELATONIN
  6. VALSARTAN 160 MG [Suspect]
     Active Substance: VALSARTAN
     Indication: HYPERTENSION
     Dosage: ?          QUANTITY:1 CAPSULE(S);?
     Route: 048
     Dates: start: 20180901, end: 20181113
  7. MAGNESIUM [Concomitant]
     Active Substance: MAGNESIUM
  8. BROVANA [Concomitant]
     Active Substance: ARFORMOTEROL TARTRATE
  9. PROZAC [Concomitant]
     Active Substance: FLUOXETINE HYDROCHLORIDE
  10. PROAIR HFA [Concomitant]
     Active Substance: ALBUTEROL SULFATE
  11. NORVASC [Concomitant]
     Active Substance: AMLODIPINE BESYLATE
  12. DICYCLOMING [Concomitant]
  13. MELOXICAN [Concomitant]
     Active Substance: MELOXICAM
  14. LORAZEPAM. [Concomitant]
     Active Substance: LORAZEPAM
  15. OXYGEN. [Concomitant]
     Active Substance: OXYGEN
  16. MULTI VITAMIN [Concomitant]
     Active Substance: VITAMINS

REACTIONS (5)
  - Blood pressure inadequately controlled [None]
  - Product substitution issue [None]
  - Cerebrovascular accident [None]
  - Recalled product administered [None]
  - Drug ineffective [None]

NARRATIVE: CASE EVENT DATE: 20180915
